FAERS Safety Report 9492597 (Version 1)
Quarter: 2013Q3

REPORT INFORMATION
  Report Type: Report from Study
  Country: BR (occurrence: BR)
  Receive Date: 20130830
  Receipt Date: 20130830
  Transmission Date: 20140515
  Serious: Yes (Other)
  Sender: FDA-Public Use
  Company Number: BR-BAXTER-2013BAX034613

PATIENT
  Sex: Female

DRUGS (5)
  1. BAXTER SOLU??O DE RINGER COM LACTATO [Suspect]
     Indication: DEHYDRATION
     Dosage: 500 TO 750 ML
     Route: 042
  2. BAXTER SOLU??O DE RINGER COM LACTATO [Suspect]
     Dosage: 10 ML/KG/H
     Route: 042
  3. BUPIVACAINE [Suspect]
     Indication: SPINAL ANAESTHESIA
     Dosage: 2 ML
  4. CLONIDINE [Suspect]
     Indication: SPINAL ANAESTHESIA
     Dosage: 0.5 ML
  5. MORPHINE [Suspect]
     Indication: SPINAL ANAESTHESIA
     Dosage: 1 ML

REACTIONS (2)
  - Hypotension [Unknown]
  - Exposure during pregnancy [Unknown]
